FAERS Safety Report 4379304-7 (Version None)
Quarter: 2004Q2

REPORT INFORMATION
  Report Type: 
  Country: None (occurrence: None)
  Receive Date: 20040610
  Receipt Date: 20040527
  Transmission Date: 20050107
  Serious: Yes (Hospitalization)
  Sender: FDA-Public Use
  Company Number: 04-00262

PATIENT
  Age: 55 Year
  Sex: Female

DRUGS (6)
  1. KADIAN (MORPHINE SULFATE SUSTAINED RELEASE) CAPSULES, 20MG (ALPHARM PH [Suspect]
     Indication: PAIN
     Dosage: 30MG, AS NEEDED, ORAL
     Route: 048
  2. ALPRAZOLAM [Suspect]
     Dosage: 0.5MG, AS NEEDED ,
  3. TRAZODONE HCL [Suspect]
     Dosage: 100MG, NIGHTLY
  4. FENTANYL [Suspect]
     Indication: PAIN
     Dosage: 125MCG/HR, EVERY THREE DAYS, TRANSDERMAL
     Route: 062
  5. FLUOXETINE [Suspect]
     Dosage: 80MG, DAILY
  6. GABAPENTIN [Suspect]
     Dosage: 300MG, THREE TIMES DAILY

REACTIONS (26)
  - ABDOMINAL PAIN [None]
  - ABDOMINAL WALL ABSCESS [None]
  - BLOOD ALBUMIN DECREASED [None]
  - BLOOD MAGNESIUM DECREASED [None]
  - BLOOD POTASSIUM DECREASED [None]
  - COGNITIVE DISORDER [None]
  - CONFUSIONAL STATE [None]
  - CONSTIPATION [None]
  - DEHYDRATION [None]
  - DELIRIUM [None]
  - DELUSION [None]
  - DEPRESSED LEVEL OF CONSCIOUSNESS [None]
  - DISORIENTATION [None]
  - DISTRACTIBILITY [None]
  - DISTURBANCE IN ATTENTION [None]
  - JOINT RANGE OF MOTION DECREASED [None]
  - MENTAL IMPAIRMENT [None]
  - MOVEMENT DISORDER [None]
  - MYOCLONUS [None]
  - NAUSEA [None]
  - PAIN [None]
  - PYREXIA [None]
  - SEDATION [None]
  - SPEECH DISORDER [None]
  - THINKING ABNORMAL [None]
  - UNEXPECTED THERAPEUTIC DRUG EFFECT [None]
